FAERS Safety Report 12706429 (Version 1)
Quarter: 2016Q3

REPORT INFORMATION
  Report Type: Spontaneous
  Country: US (occurrence: US)
  Receive Date: 20160901
  Receipt Date: 20160901
  Transmission Date: 20161109
  Serious: No
  Sender: FDA-Public Use
  Company Number: US-PFIZER INC-2016409282

PATIENT
  Sex: Female

DRUGS (4)
  1. PAXIL [Suspect]
     Active Substance: PAROXETINE HYDROCHLORIDE
     Dosage: UNKNOWN
  2. NEURONTIN [Suspect]
     Active Substance: GABAPENTIN
     Dosage: UNKNOWN
  3. SULFAMETHOXAZOLE [Suspect]
     Active Substance: SULFAMETHOXAZOLE
     Dosage: UNKNOWN
  4. GABAPENTIN. [Suspect]
     Active Substance: GABAPENTIN
     Dosage: UNKNOWN

REACTIONS (1)
  - Drug hypersensitivity [Unknown]
